FAERS Safety Report 20548814 (Version 3)
Quarter: 2022Q1

REPORT INFORMATION
  Report Type: Report from Study
  Country: JP (occurrence: JP)
  Receive Date: 20220303
  Receipt Date: 20220329
  Transmission Date: 20220424
  Serious: Yes (Hospitalization)
  Sender: FDA-Public Use
  Company Number: JP-JNJFOC-20220260902

PATIENT
  Age: 82 Year
  Sex: Male
  Weight: 63.7 kg

DRUGS (13)
  1. AMIVANTAMAB [Suspect]
     Active Substance: AMIVANTAMAB
     Indication: Oesophageal carcinoma
     Dosage: C1D1 ; MED KIT NUMBER: 100471,100472,100470
     Route: 042
     Dates: start: 20220118, end: 20220118
  2. AMIVANTAMAB [Suspect]
     Active Substance: AMIVANTAMAB
     Dosage: C1D2   (REPORTED AS 19-FEB-2022 - MONTH CONSIDERED TYPO)
     Route: 042
     Dates: start: 20220119, end: 20220119
  3. AMIVANTAMAB [Suspect]
     Active Substance: AMIVANTAMAB
     Dosage: C1D8 ON 25-JAN-2022; WITH THE MOST RECENT DOSE 15-FEB-2022 (C2D1)
     Route: 042
     Dates: start: 20220125, end: 20220215
  4. AZILSARTAN KAMEDOXOMIL [Concomitant]
     Active Substance: AZILSARTAN KAMEDOXOMIL
     Indication: Hypertension
     Route: 048
     Dates: start: 2019, end: 20220306
  5. PITAVASTATIN CALCIUM [Concomitant]
     Active Substance: PITAVASTATIN CALCIUM
     Indication: Hypercholesterolaemia
     Route: 048
     Dates: start: 2019, end: 20220306
  6. FEBUXOSTAT [Concomitant]
     Active Substance: FEBUXOSTAT
     Indication: Hyperuricaemia
     Route: 048
     Dates: start: 2019, end: 20220306
  7. LOXOPROFEN SODIUM DIHYDRATE [Concomitant]
     Active Substance: LOXOPROFEN SODIUM DIHYDRATE
     Indication: Back pain
     Route: 062
     Dates: start: 2019
  8. EFINACONAZOLE [Concomitant]
     Active Substance: EFINACONAZOLE
     Indication: Dermatophytosis of nail
     Dosage: DOSE 1 APPLICATION?REPORTED AS CLENAFIN
     Route: 061
     Dates: start: 2019
  9. DIFLUPREDNATE [Concomitant]
     Active Substance: DIFLUPREDNATE
     Indication: Pruritus
     Dosage: DOSE 1 APPLICATION?REPORTED AS MYSER
     Route: 061
     Dates: start: 2019
  10. MAGNESIUM OXIDE [Concomitant]
     Active Substance: MAGNESIUM OXIDE
     Indication: Constipation
     Route: 048
     Dates: start: 20220117, end: 20220306
  11. HEPARINOID [Concomitant]
     Indication: Dry skin
     Dosage: DOSE 1 APPLICATION
     Route: 061
     Dates: start: 20220131
  12. NADIFLOXACIN [Concomitant]
     Active Substance: NADIFLOXACIN
     Indication: Dermatitis acneiform
     Dosage: DOSE 1 APPLICATION?REPORTED AS ACUATIMU
     Route: 061
     Dates: start: 20220207
  13. LOCOID [Concomitant]
     Active Substance: HYDROCORTISONE BUTYRATE
     Indication: Dermatitis acneiform
     Dosage: 1 APPLICATION
     Route: 061
     Dates: start: 20220131

REACTIONS (2)
  - Laryngitis [Recovered/Resolved]
  - COVID-19 [Recovered/Resolved]

NARRATIVE: CASE EVENT DATE: 20220221
